FAERS Safety Report 5565832-5 (Version None)
Quarter: 2007Q4

REPORT INFORMATION
  Report Type: 
  Country: None (occurrence: None)
  Receive Date: 20071218
  Receipt Date: 20071210
  Transmission Date: 20080405
  Serious: Yes (Other)
  Sender: FDA-Public Use
  Company Number: PHBS2007JP20899

PATIENT

DRUGS (1)
  1. ZOMETA [Suspect]
     Indication: LUNG NEOPLASM MALIGNANT
     Route: 042
     Dates: start: 20071101

REACTIONS (4)
  - LOOSE TOOTH [None]
  - OSTEONECROSIS [None]
  - PERIODONTITIS [None]
  - TOOTH DISORDER [None]
